FAERS Safety Report 15953356 (Version 2)
Quarter: 2020Q3

REPORT INFORMATION
  Report Type: Spontaneous
  Country: US (occurrence: US)
  Receive Date: 20190212
  Receipt Date: 20200727
  Transmission Date: 20201102
  Serious: No
  Sender: FDA-Public Use
  Company Number: US-PFIZER INC-2018036846

PATIENT
  Age: 57 Year
  Sex: Male

DRUGS (1)
  1. SOMAVERT [Suspect]
     Active Substance: PEGVISOMANT
     Dosage: 20 MG, DAILY

REACTIONS (10)
  - Blood glucose increased [Unknown]
  - Blood triglycerides increased [Unknown]
  - Blood testosterone free decreased [Unknown]
  - Blood testosterone decreased [Unknown]
  - Thyroxine free increased [Unknown]
  - Blood parathyroid hormone increased [Unknown]
  - Blood sodium increased [Unknown]
  - Product dose omission issue [Unknown]
  - Blood calcium increased [Unknown]
  - Blood thyroid stimulating hormone decreased [Unknown]

NARRATIVE: CASE EVENT DATE: 20180806
